FAERS Safety Report 12867092 (Version 2)
Quarter: 2018Q4

REPORT INFORMATION
  Report Type: Spontaneous
  Country: US (occurrence: US)
  Receive Date: 20161020
  Receipt Date: 20181228
  Transmission Date: 20190204
  Serious: No
  Sender: FDA-Public Use
  Company Number: US-JAZZ-2016-US-014769

PATIENT
  Age: 56 Year
  Sex: Female

DRUGS (21)
  1. COENZYME Q10 [Concomitant]
     Active Substance: UBIDECARENONE
  2. MULTIVITAMIN [Concomitant]
     Active Substance: VITAMINS
  3. TRAMADOL HCL [Concomitant]
     Active Substance: TRAMADOL HYDROCHLORIDE
  4. VITAMIN D [Concomitant]
     Active Substance: CHOLECALCIFEROL
  5. XYREM [Suspect]
     Active Substance: SODIUM OXYBATE
     Indication: CATAPLEXY
     Dosage: 4.5 G, BID
     Route: 048
     Dates: start: 201404
  6. DEXEDRINE [Concomitant]
     Active Substance: DEXTROAMPHETAMINE SULFATE
  7. CYANOCOBALAMIN. [Concomitant]
     Active Substance: CYANOCOBALAMIN
  8. XYREM [Suspect]
     Active Substance: SODIUM OXYBATE
     Indication: NARCOLEPSY
     Dosage: 2.25 G, BID
     Route: 048
     Dates: start: 201404, end: 201404
  9. VITAMIN C [Concomitant]
     Active Substance: ASCORBIC ACID
  10. PROVIGIL [Concomitant]
     Active Substance: MODAFINIL
  11. XANAX [Suspect]
     Active Substance: ALPRAZOLAM
     Indication: PRODUCT USED FOR UNKNOWN INDICATION
     Dosage: UNK
     Dates: start: 20151211, end: 201607
  12. PHENOBARBITAL. [Concomitant]
     Active Substance: PHENOBARBITAL
  13. TEMAZEPAM. [Concomitant]
     Active Substance: TEMAZEPAM
  14. BUSPIRONE HCL [Concomitant]
     Active Substance: BUSPIRONE HYDROCHLORIDE
  15. CALCIUM ACETATE. [Concomitant]
     Active Substance: CALCIUM ACETATE
  16. DEPAKOTE [Concomitant]
     Active Substance: DIVALPROEX SODIUM
  17. SEROQUEL [Concomitant]
     Active Substance: QUETIAPINE FUMARATE
  18. ALPRAZOLAM. [Concomitant]
     Active Substance: ALPRAZOLAM
  19. VITAMIN E [Concomitant]
     Active Substance: .ALPHA.-TOCOPHEROL
  20. LORAZEPAM. [Concomitant]
     Active Substance: LORAZEPAM
  21. OXYCODONE HYDROCHLORIDE. [Concomitant]
     Active Substance: OXYCODONE HYDROCHLORIDE

REACTIONS (4)
  - Osteoporosis [Unknown]
  - Iron deficiency anaemia [Unknown]
  - Tremor [Not Recovered/Not Resolved]
  - Drug withdrawal syndrome [Not Recovered/Not Resolved]

NARRATIVE: CASE EVENT DATE: 201512
